FAERS Safety Report 23675215 (Version 1)
Quarter: 2024Q1

REPORT INFORMATION
  Report Type: Spontaneous
  Country: CA (occurrence: CA)
  Receive Date: 20240326
  Receipt Date: 20240326
  Transmission Date: 20240410
  Serious: Yes (Other)
  Sender: FDA-Public Use
  Company Number: CA-PFIZER INC-202400050924

PATIENT
  Age: 63 Year
  Sex: Female
  Weight: 46.3 kg

DRUGS (9)
  1. RUXIENCE [Suspect]
     Active Substance: RITUXIMAB-PVVR
     Indication: Granulomatosis with polyangiitis
     Dosage: 555 MG, WEEKLY, 4 WEEK COURSE
     Route: 042
     Dates: start: 20240223
  2. RUXIENCE [Suspect]
     Active Substance: RITUXIMAB-PVVR
     Dosage: 555 MG, WEEKLY, 4 WEEK COURSE
     Route: 042
     Dates: start: 20240223
  3. RUXIENCE [Suspect]
     Active Substance: RITUXIMAB-PVVR
     Dosage: 555 MG, AFTER 1 WEEKS (4 WEEK COURSE)
     Route: 042
     Dates: start: 20240229
  4. RUXIENCE [Suspect]
     Active Substance: RITUXIMAB-PVVR
     Dosage: 555 MG, AFTER 1 WEEKS (4 WEEK COURSE)
     Route: 042
     Dates: start: 20240229
  5. RUXIENCE [Suspect]
     Active Substance: RITUXIMAB-PVVR
     Dosage: 555 MG, WEEKLY, 4 WEEK COURSE (555 MG, 1 WEEK AND 5 DAYS)
     Route: 042
     Dates: start: 20240313
  6. RUXIENCE [Suspect]
     Active Substance: RITUXIMAB-PVVR
     Dosage: 555 MG, WEEKLY, 4 WEEK COURSE (555 MG, 1 WEEK AND 5 DAYS)
     Route: 042
     Dates: start: 20240313
  7. RUXIENCE [Suspect]
     Active Substance: RITUXIMAB-PVVR
     Dosage: 555 MG, WEEKLY, 4 WEEK COURSE (555 MG, AFTER 8 DAYS)
     Route: 042
     Dates: start: 20240321
  8. RUXIENCE [Suspect]
     Active Substance: RITUXIMAB-PVVR
     Dosage: 555 MG, WEEKLY, 4 WEEK COURSE (555 MG, AFTER 8 DAYS)
     Route: 042
     Dates: start: 20240321
  9. PREDNISONE [Concomitant]
     Active Substance: PREDNISONE
     Dosage: UNK

REACTIONS (3)
  - Weight increased [Unknown]
  - Inappropriate schedule of product administration [Unknown]
  - Incorrect product administration duration [Unknown]

NARRATIVE: CASE EVENT DATE: 20240313
